FAERS Safety Report 23528906 (Version 2)
Quarter: 2025Q1

REPORT INFORMATION
  Report Type: Report from Study
  Country: US (occurrence: US)
  Receive Date: 20240215
  Receipt Date: 20250304
  Transmission Date: 20250409
  Serious: Yes (Hospitalization, Disabling)
  Sender: EMD SERONO INC
  Company Number: US-Merck Healthcare KGaA-2024008174

PATIENT
  Sex: Male

DRUGS (1)
  1. REBIF [Suspect]
     Active Substance: INTERFERON BETA-1A
     Indication: Multiple sclerosis
     Dates: start: 20040824

REACTIONS (3)
  - Decubitus ulcer [Recovering/Resolving]
  - COVID-19 [Unknown]
  - Sepsis [Unknown]
